FAERS Safety Report 12288039 (Version 1)
Quarter: 2016Q2

REPORT INFORMATION
  Report Type: Spontaneous
  Country: JP (occurrence: JP)
  Receive Date: 20160420
  Receipt Date: 20160420
  Transmission Date: 20160815
  Serious: Yes (Hospitalization)
  Sender: FDA-Public Use
  Company Number: JP-ASTRAZENECA-2016SE41720

PATIENT
  Age: 54 Year
  Sex: Female

DRUGS (8)
  1. UBRETID [Suspect]
     Active Substance: DISTIGMINE BROMIDE
     Indication: URINARY RETENTION POSTOPERATIVE
     Route: 048
  2. MAGLAX [Suspect]
     Active Substance: MAGNESIUM OXIDE
     Indication: CONSTIPATION
     Route: 048
  3. TANDOSPIRONE [Concomitant]
     Active Substance: TANDOSPIRONE
     Indication: SCHIZOPHRENIA
     Route: 048
  4. RAMELTEON [Concomitant]
     Active Substance: RAMELTEON
     Indication: SCHIZOPHRENIA
     Route: 048
  5. QUETIAPINE. [Suspect]
     Active Substance: QUETIAPINE
     Indication: SCHIZOPHRENIA
     Route: 048
  6. BIPERIDEN [Concomitant]
     Active Substance: BIPERIDEN
     Indication: SCHIZOPHRENIA
     Route: 048
  7. OLANZAPINE. [Suspect]
     Active Substance: OLANZAPINE
     Indication: SCHIZOPHRENIA
     Route: 048
  8. QUAZEPAM. [Concomitant]
     Active Substance: QUAZEPAM
     Indication: SCHIZOPHRENIA
     Route: 048

REACTIONS (3)
  - Hypermagnesaemia [Recovering/Resolving]
  - Cholinergic syndrome [Recovering/Resolving]
  - Mechanical ileus [Recovering/Resolving]
